FAERS Safety Report 23772014 (Version 1)
Quarter: 2024Q2

REPORT INFORMATION
  Report Type: Spontaneous
  Country: CA (occurrence: CA)
  Receive Date: 20240423
  Receipt Date: 20240423
  Transmission Date: 20240716
  Serious: Yes (Hospitalization, Other)
  Sender: FDA-Public Use
  Company Number: CA-002147023-NVSC2024CA080510

PATIENT
  Sex: Male

DRUGS (1)
  1. LEQVIO [Suspect]
     Active Substance: INCLISIRAN SODIUM
     Indication: Product used for unknown indication
     Dosage: UNK
     Route: 065

REACTIONS (6)
  - Hypertension [Recovering/Resolving]
  - Bile duct stone [Unknown]
  - Nephrolithiasis [Unknown]
  - Ankylosing spondylitis [Unknown]
  - Neck pain [Unknown]
  - Arthralgia [Unknown]
